FAERS Safety Report 6773018-1 (Version None)
Quarter: 2010Q2

REPORT INFORMATION
  Report Type: 
  Country: None (occurrence: None)
  Receive Date: 20100616
  Receipt Date: 20100606
  Transmission Date: 20101027
  Serious: Yes (Other)
  Sender: FDA-Public Use
  Company Number: US-PFIZER INC-2010071400

PATIENT
  Sex: Female

DRUGS (2)
  1. XANAX [Suspect]
  2. PRISTIQ [Suspect]
     Dosage: UNK
     Dates: start: 20100101

REACTIONS (6)
  - EATING DISORDER [None]
  - FEELING ABNORMAL [None]
  - HYPERHIDROSIS [None]
  - INSOMNIA [None]
  - NERVE INJURY [None]
  - PALPITATIONS [None]
